FAERS Safety Report 10518940 (Version 1)
Quarter: 2014Q4

REPORT INFORMATION
  Report Type: Spontaneous
  Country: US (occurrence: US)
  Receive Date: 20141015
  Receipt Date: 20141015
  Transmission Date: 20150528
  Serious: No
  Sender: FDA-Public Use
  Company Number: US-TARO-2013P1019112

PATIENT
  Age: 73 Year
  Sex: Female
  Weight: 70.31 kg

DRUGS (6)
  1. HYDROCORTISONE VALERATE CREAM USP 0.2% [Suspect]
     Active Substance: HYDROCORTISONE VALERATE
     Indication: DERMATITIS CONTACT
     Dosage: BID
     Route: 061
     Dates: start: 20120416, end: 2012
  2. GENERIC LIPITOR [Concomitant]
     Active Substance: ATORVASTATIN CALCIUM
  3. LEVOTHYROXINE [Concomitant]
     Active Substance: LEVOTHYROXINE
  4. CYMBALTA [Concomitant]
     Active Substance: DULOXETINE HYDROCHLORIDE
  5. DEXILANT [Concomitant]
     Active Substance: DEXLANSOPRAZOLE
  6. AMLODIPINE [Concomitant]
     Active Substance: AMLODIPINE BESYLATE

REACTIONS (1)
  - Drug ineffective [Not Recovered/Not Resolved]

NARRATIVE: CASE EVENT DATE: 20120416
